FAERS Safety Report 9850859 (Version 1)
Quarter: 2014Q1

REPORT INFORMATION
  Report Type: Spontaneous
  Country: DE (occurrence: DE)
  Receive Date: 20140128
  Receipt Date: 20140128
  Transmission Date: 20141002
  Serious: Yes (Death, Congenital Anomaly, Other)
  Sender: FDA-Public Use
  Company Number: DE-TEVA-457847GER

PATIENT
  Age: 1 Day
  Sex: Male

DRUGS (1)
  1. OXCARBAZEPINE [Suspect]
     Route: 064
     Dates: start: 20080928, end: 20090513

REACTIONS (9)
  - Multi-organ failure [Fatal]
  - Cardiac failure [Fatal]
  - Sepsis [Fatal]
  - Congestive cardiomyopathy [Not Recovered/Not Resolved]
  - Congenital mitral valve incompetence [Not Recovered/Not Resolved]
  - Congenital tricuspid valve incompetence [Not Recovered/Not Resolved]
  - Congenital inguinal hernia [Recovered/Resolved]
  - Congenital hydronephrosis [Not Recovered/Not Resolved]
  - Patent ductus arteriosus [Recovered/Resolved with Sequelae]
